FAERS Safety Report 15436807 (Version 20)
Quarter: 2019Q4

REPORT INFORMATION
  Report Type: Spontaneous
  Country: US (occurrence: US)
  Receive Date: 20180927
  Receipt Date: 20191120
  Transmission Date: 20200122
  Serious: Yes (Hospitalization)
  Sender: FDA-Public Use
  Company Number: US-ACTELION-A-US2018-179263

PATIENT
  Age: 63 Year
  Sex: Female
  Weight: 61.22 kg

DRUGS (8)
  1. VELETRI [Suspect]
     Active Substance: EPOPROSTENOL
     Dosage: 18.75 NG/KG, PER MIN
     Route: 042
  2. OPSUMIT [Suspect]
     Active Substance: MACITENTAN
     Indication: PULMONARY ARTERIAL HYPERTENSION
     Dosage: 10 MG, QD
     Route: 048
  3. ADEMPAS [Suspect]
     Active Substance: RIOCIGUAT
     Indication: PRODUCT USED FOR UNKNOWN INDICATION
     Route: 065
  4. OXYGEN. [Concomitant]
     Active Substance: OXYGEN
  5. VELETRI [Suspect]
     Active Substance: EPOPROSTENOL
     Dosage: 40 NG/KG, PER MIN
     Route: 042
     Dates: end: 20191110
  6. ELIQUIS [Concomitant]
     Active Substance: APIXABAN
  7. ORENITRAM [Concomitant]
     Active Substance: TREPROSTINIL
  8. VELETRI [Suspect]
     Active Substance: EPOPROSTENOL
     Indication: PULMONARY ARTERIAL HYPERTENSION
     Dosage: 40 NG/KG, PER MIN
     Route: 042

REACTIONS (22)
  - Gastritis [Unknown]
  - Gastric disorder [Unknown]
  - Weight decreased [Unknown]
  - Catheter site erosion [Unknown]
  - Dyspnoea exertional [Not Recovered/Not Resolved]
  - Arthralgia [Unknown]
  - Pain [Unknown]
  - Transfusion [Unknown]
  - Diarrhoea [Unknown]
  - Abdominal discomfort [Unknown]
  - Gastrointestinal haemorrhage [Unknown]
  - Haemoglobin decreased [Unknown]
  - Abdominal pain upper [Unknown]
  - Haematocrit decreased [Unknown]
  - Constipation [Unknown]
  - Musculoskeletal pain [Unknown]
  - Headache [Unknown]
  - Pain in jaw [Unknown]
  - Pain in extremity [Unknown]
  - Catheter site erythema [Unknown]
  - Oxygen consumption [Unknown]
  - Fatigue [Not Recovered/Not Resolved]

NARRATIVE: CASE EVENT DATE: 20180915
